FAERS Safety Report 8522421-8 (Version None)
Quarter: 2012Q3

REPORT INFORMATION
  Report Type: 
  Country: None (occurrence: None)
  Receive Date: 20120719
  Receipt Date: 20120709
  Transmission Date: 20120928
  Serious: Yes (Death, Hospitalization, Other)
  Sender: FDA-Public Use
  Company Number: CO-BAXTER-2012BAX011008

PATIENT
  Age: 58 Year
  Sex: Male

DRUGS (1)
  1. NITROGLYCERIN IN DEXTROSE 5% [Suspect]
     Indication: BLOOD PRESSURE MANAGEMENT
     Route: 042
     Dates: start: 20120612, end: 20120612

REACTIONS (2)
  - DRUG INEFFECTIVE [None]
  - DEATH [None]
